FAERS Safety Report 7514042-0 (Version None)
Quarter: 2011Q2

REPORT INFORMATION
  Report Type: 
  Country: None (occurrence: None)
  Receive Date: 20110531
  Receipt Date: 20110524
  Transmission Date: 20111010
  Serious: Yes (Other)
  Sender: FDA-Public Use
  Company Number: ES-SANOFI-AVENTIS-2011SA016697

PATIENT
  Age: 58 Year
  Sex: Female

DRUGS (5)
  1. SOLOSTAR [Suspect]
     Indication: TYPE 1 DIABETES MELLITUS
     Dates: start: 20110201
  2. SOLOSTAR [Suspect]
     Dates: start: 20110201
  3. APIDRA SOLOSTAR [Suspect]
     Indication: TYPE 1 DIABETES MELLITUS
     Dates: start: 20110201
  4. LANTUS [Suspect]
     Indication: TYPE 1 DIABETES MELLITUS
     Dates: start: 20110201
  5. CORTICOSTEROID NOS [Concomitant]
     Indication: ASTHMA
     Route: 055

REACTIONS (2)
  - HYPOGLYCAEMIA [None]
  - WRONG DRUG ADMINISTERED [None]
